FAERS Safety Report 17414743 (Version 1)
Quarter: 2020Q1

REPORT INFORMATION
  Report Type: Spontaneous
  Country: TW (occurrence: TW)
  Receive Date: 20200213
  Receipt Date: 20200213
  Transmission Date: 20200409
  Serious: Yes (Other)
  Sender: FDA-Public Use
  Company Number: TW-PFIZER INC-2020057549

PATIENT
  Age: 71 Year
  Sex: Male

DRUGS (3)
  1. XELJANZ [Suspect]
     Active Substance: TOFACITINIB CITRATE
     Indication: RHEUMATOID ARTHRITIS
     Dosage: 5 MG, BID (TWICE A DAY)
     Route: 048
     Dates: start: 20170925
  2. XELJANZ [Suspect]
     Active Substance: TOFACITINIB CITRATE
     Dosage: 5 MG, QD (ONCE A DAY)
     Route: 048
     Dates: start: 20190701
  3. XELJANZ [Suspect]
     Active Substance: TOFACITINIB CITRATE
     Dosage: 7.5 MG, QD (ONCE A DAY)
     Route: 048

REACTIONS (4)
  - Folliculitis [Not Recovered/Not Resolved]
  - Exostosis [Unknown]
  - Blood creatinine increased [Not Recovered/Not Resolved]
  - Drug ineffective [Not Recovered/Not Resolved]

NARRATIVE: CASE EVENT DATE: 20200204
